FAERS Safety Report 13835141 (Version 1)
Quarter: 2017Q3

REPORT INFORMATION
  Report Type: Spontaneous
  Country: PL (occurrence: PL)
  Receive Date: 20170804
  Receipt Date: 20170804
  Transmission Date: 20171127
  Serious: Yes (Hospitalization, Other)
  Sender: FDA-Public Use
  Company Number: PL-ACCORD-056571

PATIENT
  Age: 51 Year
  Sex: Female

DRUGS (2)
  1. GEMCITABINE/GEMCITABINE HYDROCHLORIDE [Suspect]
     Active Substance: GEMCITABINE\GEMCITABINE HYDROCHLORIDE
     Indication: RENAL CANCER STAGE III
     Dosage: CYCLES AT 21-DAY INTERVALS (ON 1 AND 8TH DAY)
  2. CISPLATIN. [Suspect]
     Active Substance: CISPLATIN
     Indication: RENAL CANCER STAGE III
     Dosage: CYCLES AT 21-DAY INTERVALS (ON 1 AND 8TH DAY)

REACTIONS (7)
  - Off label use [Unknown]
  - Dyspnoea exertional [None]
  - Tinnitus [Unknown]
  - Pleural effusion [Not Recovered/Not Resolved]
  - Anaemia [Recovering/Resolving]
  - Hyperhidrosis [None]
  - Chest pain [Unknown]
